FAERS Safety Report 4743557-3 (Version None)
Quarter: 2005Q3

REPORT INFORMATION
  Report Type: 
  Country: None (occurrence: None)
  Receive Date: 20050809
  Receipt Date: 20050802
  Transmission Date: 20060218
  Serious: Yes (Other)
  Sender: FDA-Public Use
  Company Number: 2005-01-0015

PATIENT
  Age: 47 Year
  Sex: Male

DRUGS (1)
  1. AERIUS                    (DESLORATADINE) [Suspect]
     Dosage: ORAL
     Route: 048

REACTIONS (1)
  - BLOOD PRESSURE SYSTOLIC INCREASED [None]
